FAERS Safety Report 6447172-5 (Version None)
Quarter: 2009Q4

REPORT INFORMATION
  Report Type: 
  Country: None (occurrence: None)
  Receive Date: 20091119
  Receipt Date: 20091111
  Transmission Date: 20100525
  Serious: Yes (Hospitalization, Other)
  Sender: FDA-Public Use
  Company Number: US-AMGEN-QUU374028

PATIENT
  Sex: Male

DRUGS (1)
  1. EPOGEN [Suspect]
     Indication: DIALYSIS
     Route: 065

REACTIONS (2)
  - ANAEMIA [None]
  - APLASIA PURE RED CELL [None]
